FAERS Safety Report 14495168 (Version 10)
Quarter: 2020Q2

REPORT INFORMATION
  Report Type: Report from Study
  Country: US (occurrence: US)
  Receive Date: 20180206
  Receipt Date: 20200424
  Transmission Date: 20200713
  Serious: Yes (Death, Life-Threatening, Hospitalization, Disabling, Other)
  Sender: FDA-Public Use
  Company Number: US-ACTELION-A-NJ2018-166940

PATIENT
  Age: 91 Year
  Sex: Male

DRUGS (3)
  1. OPSUMIT [Suspect]
     Active Substance: MACITENTAN
     Indication: PULMONARY ARTERIAL HYPERTENSION
     Dosage: 10 MG, QD
     Route: 048
     Dates: start: 20170213
  2. OPSUMIT [Suspect]
     Active Substance: MACITENTAN
     Dosage: 10 MG, QD
     Route: 048
     Dates: start: 20170213
  3. ADCIRCA [Suspect]
     Active Substance: TADALAFIL
     Indication: PULMONARY ARTERIAL HYPERTENSION
     Dosage: UNK
     Route: 065

REACTIONS (9)
  - Vision blurred [Unknown]
  - Blood pressure systolic decreased [Unknown]
  - Macular degeneration [Unknown]
  - Death [Fatal]
  - Heart rate irregular [Unknown]
  - Hospice care [Not Recovered/Not Resolved]
  - Gastric cancer [Unknown]
  - Gastrointestinal disorder [Unknown]
  - Hypotension [Unknown]

NARRATIVE: CASE EVENT DATE: 202002
